FAERS Safety Report 10191204 (Version 2)
Quarter: 2014Q2

REPORT INFORMATION
  Report Type: Spontaneous
  Country: PT (occurrence: PT)
  Receive Date: 20140523
  Receipt Date: 20140610
  Transmission Date: 20141212
  Serious: Yes (Death, Hospitalization, Other)
  Sender: FDA-Public Use
  Company Number: PT-CELGENEUS-130-50794-14051542

PATIENT
  Age: 60 Year
  Sex: Male

DRUGS (6)
  1. VIDAZA [Suspect]
     Indication: REFRACTORY CYTOPENIA WITH MULTILINEAGE DYSPLASIA
     Route: 065
     Dates: start: 201012, end: 201108
  2. GLICLAZIDE [Concomitant]
     Indication: PRODUCT USED FOR UNKNOWN INDICATION
     Route: 065
  3. ATORVASTATIN [Concomitant]
     Indication: PRODUCT USED FOR UNKNOWN INDICATION
     Route: 065
  4. ACETYLSALICYLIC ACID [Concomitant]
     Indication: PRODUCT USED FOR UNKNOWN INDICATION
     Route: 065
  5. DARBEPOETIN ALFA [Concomitant]
     Indication: PRODUCT USED FOR UNKNOWN INDICATION
     Route: 065
     Dates: start: 201112, end: 201202
  6. DESFERRIOXAMINE [Concomitant]
     Indication: PRODUCT USED FOR UNKNOWN INDICATION
     Route: 065
     Dates: start: 201202

REACTIONS (6)
  - Lung infection [Fatal]
  - Haemoglobin decreased [Unknown]
  - Neutrophil count decreased [Unknown]
  - Pneumonia [Unknown]
  - Acute myeloid leukaemia [Unknown]
  - White blood cell count decreased [Unknown]
